FAERS Safety Report 22306823 (Version 4)
Quarter: 2023Q2

REPORT INFORMATION
  Report Type: Spontaneous
  Country: PT (occurrence: PT)
  Receive Date: 20230511
  Receipt Date: 20230628
  Transmission Date: 20230722
  Serious: Yes (Other)
  Sender: FDA-Public Use
  Company Number: PT-ROCHE-3346794

PATIENT
  Age: 65 Year
  Sex: Male
  Weight: 60 kg

DRUGS (14)
  1. RITUXIMAB [Suspect]
     Active Substance: RITUXIMAB
     Indication: Mantle cell lymphoma
     Route: 065
     Dates: start: 20221204, end: 20230426
  2. VENETOCLAX [Suspect]
     Active Substance: VENETOCLAX
     Indication: Mantle cell lymphoma
     Route: 065
     Dates: start: 20191122, end: 20200914
  3. VENETOCLAX [Suspect]
     Active Substance: VENETOCLAX
     Route: 065
     Dates: start: 20220620, end: 20221203
  4. CYTARABINE [Suspect]
     Active Substance: CYTARABINE
     Indication: Mantle cell lymphoma
     Route: 065
     Dates: start: 20221204, end: 20230426
  5. CYTARABINE [Suspect]
     Active Substance: CYTARABINE
     Route: 065
  6. PREDNISONE [Suspect]
     Active Substance: PREDNISONE
     Indication: Mantle cell lymphoma
     Dosage: R-CHOP ALTERNATING WITH R-HDAC, HAVING COMPLETED A TOTAL OF SIX CYCLES BY 01/JUL/2019,
     Route: 065
  7. IBRUTINIB [Suspect]
     Active Substance: IBRUTINIB
     Indication: Mantle cell lymphoma
     Route: 065
     Dates: start: 20191122, end: 20200914
  8. IBRUTINIB [Suspect]
     Active Substance: IBRUTINIB
     Route: 065
     Dates: start: 20210426, end: 20210624
  9. IBRUTINIB [Suspect]
     Active Substance: IBRUTINIB
     Route: 065
     Dates: start: 20220620, end: 20221203
  10. VINCRISTINE [Suspect]
     Active Substance: VINCRISTINE
     Indication: Mantle cell lymphoma
     Route: 065
  11. BENDAMUSTINE [Suspect]
     Active Substance: BENDAMUSTINE
     Indication: Mantle cell lymphoma
     Route: 065
     Dates: start: 20221204, end: 20230426
  12. CYCLOPHOSPHAMIDE [Suspect]
     Active Substance: CYCLOPHOSPHAMIDE
     Indication: Mantle cell lymphoma
     Dosage: R-CHOP ALTERNATING WITH R-HDAC, HAVING COMPLETED A TOTAL OF SIX CYCLES BY 01/JUL/2019,
     Route: 065
  13. DOXORUBICIN [Suspect]
     Active Substance: DOXORUBICIN
     Indication: Mantle cell lymphoma
     Route: 065
  14. COTRIMOXAZOLE [Concomitant]
     Active Substance: SULFAMETHOXAZOLE\TRIMETHOPRIM

REACTIONS (1)
  - Neoplasm recurrence [Unknown]
